FAERS Safety Report 9611225 (Version 6)
Quarter: 2013Q4

REPORT INFORMATION
  Report Type: Report from Study
  Country: FR (occurrence: FR)
  Receive Date: 20131009
  Receipt Date: 20131029
  Transmission Date: 20140711
  Serious: Yes (Death)
  Sender: FDA-Public Use
  Company Number: FR-ROCHE-1282389

PATIENT
  Age: 69 Year
  Sex: Female
  Weight: 47 kg

DRUGS (12)
  1. PLAQUENIL [Concomitant]
     Indication: SYSTEMIC SCLEROSIS
     Route: 048
     Dates: start: 201210, end: 201211
  2. METHOTREXATE [Concomitant]
     Indication: SYSTEMIC SCLEROSIS
     Route: 048
     Dates: start: 20121119, end: 20130116
  3. PHOTOTHERAPY UVA [Concomitant]
     Indication: SYSTEMIC SCLEROSIS
     Dosage: DOSE: 1 OTHER
     Route: 065
     Dates: start: 20130121, end: 20130315
  4. DERMOVAL (FRANCE) [Concomitant]
     Indication: LICHEN SCLEROSUS
     Route: 061
     Dates: start: 2003
  5. TRAVATAN [Concomitant]
     Indication: GLAUCOMA
     Route: 047
     Dates: start: 2010
  6. COZAAR [Concomitant]
     Indication: SYSTEMIC SCLEROSIS
     Route: 048
     Dates: start: 201211
  7. MOPRAL (FRANCE) [Concomitant]
     Indication: PROPHYLAXIS
     Route: 048
     Dates: start: 20130527
  8. FUCIDINE CREAM [Concomitant]
     Indication: WOUND
     Route: 061
     Dates: start: 20130627
  9. ALGOPLAQUE (FRANCE) [Concomitant]
     Indication: WOUND
     Dosage: DOSE: 1 OTHER
     Route: 061
     Dates: start: 20130627
  10. DAFALGAN [Concomitant]
     Indication: PYREXIA
     Route: 048
     Dates: start: 20130731, end: 20130731
  11. PRIMPERAN (FRANCE) [Concomitant]
     Indication: NAUSEA
     Route: 048
     Dates: start: 20130527, end: 20130806
  12. TOCILIZUMAB [Suspect]
     Indication: SYSTEMIC SCLEROSIS
     Dosage: DATE OF MOST RECENT DOSE PRIOR TO FATAL EVENT: 13/SEP/2013
     Route: 058
     Dates: start: 20130606

REACTIONS (1)
  - Lung infection [Fatal]
